FAERS Safety Report 6402960-6 (Version None)
Quarter: 2009Q4

REPORT INFORMATION
  Report Type: 
  Country: None (occurrence: None)
  Receive Date: 20091016
  Receipt Date: 20091006
  Transmission Date: 20100525
  Serious: Yes (Hospitalization)
  Sender: FDA-Public Use
  Company Number: US-ELI_LILLY_AND_COMPANY-US200910001368

PATIENT
  Sex: Female

DRUGS (8)
  1. HUMALOG [Suspect]
     Indication: TYPE 1 DIABETES MELLITUS
     Route: 058
  2. METOPROLOL [Concomitant]
  3. VYTORIN [Concomitant]
  4. VYTORIN [Concomitant]
  5. AZOR [Concomitant]
  6. ASPIRIN [Concomitant]
  7. METOCLOPRAMIDE [Concomitant]
  8. VENLAFAXINE [Concomitant]

REACTIONS (7)
  - ABDOMINAL DISCOMFORT [None]
  - BLOOD GLUCOSE INCREASED [None]
  - DRUG INEFFECTIVE [None]
  - INTERMITTENT CLAUDICATION [None]
  - MOBILITY DECREASED [None]
  - TOE AMPUTATION [None]
  - VITREOUS FLOATERS [None]
